FAERS Safety Report 21759033 (Version 1)
Quarter: 2022Q4

REPORT INFORMATION
  Report Type: Spontaneous
  Country: US (occurrence: None)
  Receive Date: 20221221
  Receipt Date: 20221221
  Transmission Date: 20230113
  Serious: Yes (Disabling)
  Sender: FDA-Public Use
  Company Number: US-SUPERNUS Pharmaceuticals, Inc.-SUP202203-000490

PATIENT
  Age: 57 Year

DRUGS (1)
  1. TROKENDI XR [Suspect]
     Active Substance: TOPIRAMATE
     Indication: Product used for unknown indication
     Dosage: NOT PROVIDED

REACTIONS (1)
  - Disability [Unknown]
